FAERS Safety Report 17736843 (Version 5)
Quarter: 2021Q2

REPORT INFORMATION
  Report Type: Report from Study
  Country: None (occurrence: NL)
  Receive Date: 20200502
  Receipt Date: 20210518
  Transmission Date: 20210716
  Serious: Yes (Hospitalization)
  Sender: FDA-Public Use
  Company Number: NL-ABBVIE-17P-114-1924736-00

PATIENT
  Age: 55 Year
  Sex: Male
  Weight: 76 kg

DRUGS (14)
  1. SYMMETREL [Concomitant]
     Active Substance: AMANTADINE HYDROCHLORIDE
     Indication: CONSTIPATION
     Route: 048
     Dates: start: 20200428
  2. DUODOPA [Suspect]
     Active Substance: CARBIDOPA\LEVODOPA
     Dosage: MORNING DOSE: 4.5ML, CONTINUOUS DOSE: 2.4ML, EXTRA DOSE: 1.7ML
     Route: 050
  3. VENLAFAXINE [Concomitant]
     Active Substance: VENLAFAXINE HYDROCHLORIDE
     Indication: PRODUCT USED FOR UNKNOWN INDICATION
  4. MOVICOLON [Concomitant]
     Active Substance: POLYETHYLENE GLYCOL 3350\POTASSIUM CHLORIDE\SODIUM BICARBONATE\SODIUM CHLORIDE
     Indication: ABNORMAL FAECES
     Route: 048
     Dates: start: 20200428
  5. DUODOPA [Suspect]
     Active Substance: CARBIDOPA\LEVODOPA
     Dosage: MD 2.7 CD 1.8 E D 1.5
     Route: 050
  6. DUODOPA [Suspect]
     Active Substance: CARBIDOPA\LEVODOPA
     Indication: PARKINSON^S DISEASE
     Dosage: MD: 5, CD: 2.1, ED: 2
     Route: 050
     Dates: start: 20160418
  7. DUODOPA [Suspect]
     Active Substance: CARBIDOPA\LEVODOPA
     Dosage: MD 4.5?CD 1.8?ED 1.5
     Route: 050
  8. DUODOPA [Suspect]
     Active Substance: CARBIDOPA\LEVODOPA
     Dosage: MD 3.9?CD 1.7?ED 1.5
     Route: 050
  9. DUODOPA [Suspect]
     Active Substance: CARBIDOPA\LEVODOPA
     Dosage: MD: 4.5, CD: 2.1, ED: 1.7
     Route: 050
  10. DUODOPA [Suspect]
     Active Substance: CARBIDOPA\LEVODOPA
     Dosage: MD 2.7 CD 1.7 E D 1.5
     Route: 050
  11. DUODOPA [Suspect]
     Active Substance: CARBIDOPA\LEVODOPA
     Dosage: MD: 1.0ML, CD: 1.4ML/H, ED: 1.5ML; 16 HOUR ADMINISTRATION
     Route: 050
  12. DUODOPA [Suspect]
     Active Substance: CARBIDOPA\LEVODOPA
     Dosage: MD: 1.0ML, CD: 1.4ML/H, ED: 1.0ML; 16 HOUR ADMINISTRATION
     Route: 050
  13. DULCOLAX NOS [Concomitant]
     Active Substance: BISACODYL OR DOCUSATE SODIUM
     Indication: PRODUCT USED FOR UNKNOWN INDICATION
     Dates: start: 20200428
  14. MADOPAR [Concomitant]
     Active Substance: BENSERAZIDE HYDROCHLORIDE\LEVODOPA
     Indication: MUSCLE RIGIDITY
     Dosage: AT 08:00 AM

REACTIONS (40)
  - Arthralgia [Not Recovered/Not Resolved]
  - Reduced facial expression [Not Recovered/Not Resolved]
  - Hypophagia [Recovering/Resolving]
  - Dystonia [Recovering/Resolving]
  - Dyskinesia [Recovering/Resolving]
  - Bradykinesia [Not Recovered/Not Resolved]
  - Muscle spasms [Unknown]
  - General physical health deterioration [Recovered/Resolved]
  - Gait disturbance [Recovering/Resolving]
  - Dysphagia [Not Recovered/Not Resolved]
  - Adverse drug reaction [Not Recovered/Not Resolved]
  - Hyperhidrosis [Not Recovered/Not Resolved]
  - Muscle spasms [Recovering/Resolving]
  - Asthenia [Not Recovered/Not Resolved]
  - Epigastric discomfort [Unknown]
  - On and off phenomenon [Recovering/Resolving]
  - Cognitive disorder [Not Recovered/Not Resolved]
  - Gait disturbance [Not Recovered/Not Resolved]
  - Stress [Recovering/Resolving]
  - Mental disorder [Unknown]
  - Tension [Not Recovered/Not Resolved]
  - Muscular weakness [Recovering/Resolving]
  - Weight decreased [Recovered/Resolved]
  - On and off phenomenon [Recovered/Resolved]
  - Muscle rigidity [Not Recovered/Not Resolved]
  - Underdose [Not Recovered/Not Resolved]
  - Feeling abnormal [Not Recovered/Not Resolved]
  - Panic attack [Recovered/Resolved]
  - Therapeutic product effect incomplete [Not Recovered/Not Resolved]
  - Weight increased [Recovered/Resolved]
  - Gait spastic [Not Recovered/Not Resolved]
  - Infrequent bowel movements [Recovered/Resolved]
  - Weight fluctuation [Not Recovered/Not Resolved]
  - Speech disorder [Not Recovered/Not Resolved]
  - Faeces hard [Recovered/Resolved]
  - Fatigue [Recovering/Resolving]
  - Overdose [Recovered/Resolved]
  - Malaise [Unknown]
  - Gait disturbance [Recovered/Resolved]
  - Impaired quality of life [Unknown]

NARRATIVE: CASE EVENT DATE: 20170329
